FAERS Safety Report 26016191 (Version 4)
Quarter: 2025Q4

REPORT INFORMATION
  Report Type: Report from Study
  Country: EU (occurrence: EU)
  Receive Date: 20251110
  Receipt Date: 20251128
  Transmission Date: 20260117
  Serious: Yes (Hospitalization)
  Sender: ABBVIE
  Company Number: EU-ABBVIE-6529732

PATIENT
  Age: 64 Year
  Sex: Female
  Weight: 60 kg

DRUGS (11)
  1. UPADACITINIB [Suspect]
     Active Substance: UPADACITINIB
     Indication: Crohn^s disease
     Route: 048
     Dates: start: 20250311, end: 20251001
  2. Optovite [Concomitant]
     Indication: Vitamin B12
     Dosage: 1 VIAL
     Route: 048
     Dates: start: 20170505
  3. ETORICOXIB [Concomitant]
     Active Substance: ETORICOXIB
     Indication: Pain
     Route: 048
     Dates: start: 20221122
  4. ALPRAZOLAM [Concomitant]
     Active Substance: ALPRAZOLAM
     Indication: Depression
     Route: 048
  5. HYDROCHLOROTHIAZIDE\VALSARTAN [Concomitant]
     Active Substance: HYDROCHLOROTHIAZIDE\VALSARTAN
     Indication: Hypertension
     Dosage: 320/25 MG
     Route: 048
  6. Calcium (colecalciferol) [Concomitant]
     Indication: Product used for unknown indication
     Route: 048
  7. ATENOLOL [Concomitant]
     Active Substance: ATENOLOL
     Indication: Hypertension
     Route: 048
  8. Kilor (iron) [Concomitant]
     Indication: Prophylaxis
     Route: 048
     Dates: start: 20230327
  9. Hierro [Concomitant]
     Indication: Anaemia
     Route: 042
     Dates: start: 20250708
  10. Ibandronato [Concomitant]
     Indication: Myalgia
     Route: 048
     Dates: start: 20250826
  11. LYRICA [Concomitant]
     Active Substance: PREGABALIN
     Indication: Anxiety
     Route: 048
     Dates: start: 20250908

REACTIONS (3)
  - Arthritis bacterial [Recovered/Resolved]
  - Ileal stenosis [Recovered/Resolved with Sequelae]
  - Phlebitis [Recovered/Resolved]

NARRATIVE: CASE EVENT DATE: 20251002
